FAERS Safety Report 10659539 (Version 1)
Quarter: 2014Q4

REPORT INFORMATION
  Report Type: Spontaneous
  Country: US (occurrence: None)
  Receive Date: 20141205
  Receipt Date: 20141205
  Transmission Date: 20150529
  Serious: No
  Sender: FDA-Public Use
  Company Number: 163-POMAL-14062439

PATIENT
  Age: 54 Year
  Sex: Female
  Weight: 76.2 kg

DRUGS (11)
  1. SIMVASTATIN. [Concomitant]
     Active Substance: SIMVASTATIN
  2. ANASTEROLE [Concomitant]
  3. COROMEGA (FISH OIL) [Concomitant]
  4. CALCIUM 500  + VIT D (LEKOVIT CA) [Concomitant]
  5. ADVIL [Concomitant]
     Active Substance: IBUPROFEN
  6. VITAMIN D (ERGOCALCIFEROL) [Concomitant]
     Active Substance: ERGOCALCIFEROL
  7. POMALYST [Suspect]
     Active Substance: POMALIDOMIDE
     Indication: PLASMA CELL MYELOMA
     Dosage: 2  MG, 1 IN 1 D, PO
     Dates: start: 20131202
  8. METOFORMIN HCL [Concomitant]
  9. ZOMETA [Concomitant]
     Active Substance: ZOLEDRONIC ACID
  10. VITAMIN E (TOCOPHEROL) (GEL) [Concomitant]
  11. LEXAPRO (ESCITALOPRAM) [Concomitant]

REACTIONS (4)
  - Pruritus [None]
  - Laboratory test abnormal [None]
  - Dizziness [None]
  - Neuropathy peripheral [None]

NARRATIVE: CASE EVENT DATE: 201402
